FAERS Safety Report 5807024-8 (Version None)
Quarter: 2008Q3

REPORT INFORMATION
  Report Type: 
  Country: None (occurrence: None)
  Receive Date: 20080711
  Receipt Date: 20080710
  Transmission Date: 20090109
  Serious: Yes (Life-Threatening, Hospitalization, Other)
  Sender: FDA-Public Use
  Company Number: BR-BRISTOL-MYERS SQUIBB COMPANY-14256911

PATIENT
  Age: 66 Year
  Sex: Male
  Weight: 45 kg

DRUGS (6)
  1. CARBOPLATIN [Suspect]
     Indication: NON-SMALL CELL LUNG CANCER
     Dosage: D1 OF 21 DAY CYCLE
     Route: 042
     Dates: start: 20080610, end: 20080610
  2. PEMETREXED DISODIUM [Suspect]
     Indication: NON-SMALL CELL LUNG CANCER
     Dosage: D1 OF 21 DAY CYCLE
     Route: 042
     Dates: start: 20080610, end: 20080610
  3. FOLIC ACID [Concomitant]
     Indication: SUPPLEMENTATION THERAPY
     Dates: start: 20080515
  4. VITAMIN B-12 [Concomitant]
     Indication: SUPPLEMENTATION THERAPY
     Dates: start: 20080515, end: 20080515
  5. DEXAMETHASONE [Concomitant]
     Indication: SUPPLEMENTATION THERAPY
     Dates: start: 20080609, end: 20080611
  6. LEVOFLOXACIN [Concomitant]
     Indication: PNEUMONITIS
     Dates: start: 20080617, end: 20080623

REACTIONS (5)
  - ATELECTASIS [None]
  - CARDIAC FAILURE HIGH OUTPUT [None]
  - HAEMOGLOBIN DECREASED [None]
  - NEUTROPENIA [None]
  - THROMBOCYTOPENIA [None]
